FAERS Safety Report 17278482 (Version 2)
Quarter: 2020Q2

REPORT INFORMATION
  Report Type: Spontaneous
  Country: US (occurrence: US)
  Receive Date: 20200116
  Receipt Date: 20200403
  Transmission Date: 20200713
  Serious: Yes (Other)
  Sender: FDA-Public Use
  Company Number: US-PFIZER INC-2020020802

PATIENT
  Age: 35 Year
  Sex: Male
  Weight: 111 kg

DRUGS (4)
  1. VENLAFAXINE [Concomitant]
     Active Substance: VENLAFAXINE HYDROCHLORIDE
     Indication: DEPRESSION
     Dosage: 75 MG, DAILY (IN THE MORNING)
     Dates: start: 2018
  2. LORAZEPAM. [Concomitant]
     Active Substance: LORAZEPAM
     Indication: POST-TRAUMATIC STRESS DISORDER
     Dosage: 1 MG, 3X/DAY
     Dates: start: 2018
  3. LORAZEPAM. [Concomitant]
     Active Substance: LORAZEPAM
     Indication: ANXIETY
  4. LYRICA [Suspect]
     Active Substance: PREGABALIN
     Indication: NEURALGIA
     Dosage: 50 MG, 3X/DAY
     Dates: start: 2019

REACTIONS (3)
  - Loss of consciousness [Not Recovered/Not Resolved]
  - Therapeutic product effect incomplete [Unknown]
  - Depression [Unknown]
